FAERS Safety Report 12781538 (Version 2)
Quarter: 2016Q4

REPORT INFORMATION
  Report Type: Spontaneous
  Country: GB (occurrence: GB)
  Receive Date: 20160926
  Receipt Date: 20161025
  Transmission Date: 20170207
  Serious: Yes (Other)
  Sender: FDA-Public Use
  Company Number: GB-PFIZER INC-2016439622

PATIENT
  Sex: Male
  Weight: 84 kg

DRUGS (15)
  1. LACTULOSE. [Concomitant]
     Active Substance: LACTULOSE
     Dosage: 15 ML, 2X/DAY
  2. SENNA /00142201/ [Concomitant]
     Active Substance: SENNA LEAF
     Dosage: 15 MG, AT NIGHT
  3. ATORVASTATIN [Suspect]
     Active Substance: ATORVASTATIN
     Dosage: 20 MG, IN THE NIGHT
     Route: 048
  4. GANFORT [Concomitant]
     Active Substance: BIMATOPROST\TIMOLOL
     Dosage: 1 DROP DAILY
     Route: 047
  5. SNO TEARS [Concomitant]
     Dosage: 1 DROP TWICE A DAY
     Route: 047
  6. SPIRONOLACTONE. [Concomitant]
     Active Substance: SPIRONOLACTONE
     Dosage: 25 MG, 1X/DAY IN THE MORNING
  7. LEVOTHYROXINE. [Concomitant]
     Active Substance: LEVOTHYROXINE
     Dosage: 100 UG, 1X/DAY
  8. LEVOFLOXACIN. [Suspect]
     Active Substance: LEVOFLOXACIN
     Dosage: UNK
     Route: 048
     Dates: end: 20160823
  9. BUMETANIDE. [Concomitant]
     Active Substance: BUMETANIDE
     Dosage: 1 MG, 2X/DAY
  10. FUROSEMIDE. [Concomitant]
     Active Substance: FUROSEMIDE
     Dosage: 40MG ONCE A DAY, IN THE MORNING
  11. AMLODIPINE [Concomitant]
     Active Substance: AMLODIPINE BESYLATE
     Dosage: 10MG ONCE A DAY
  12. LEVOFLOXACIN. [Suspect]
     Active Substance: LEVOFLOXACIN
     Indication: PNEUMONIA
     Dosage: 500 MG, 2X/DAY
     Route: 042
     Dates: start: 20160815
  13. ASPIRIN /00002701/ [Suspect]
     Active Substance: ASPIRIN
     Dosage: 75 MG, 1X/DAY
     Route: 048
  14. BENDROFLUMETHIAZIDE ACTAVIS [Concomitant]
     Dosage: 25 MG ONCE A DAY, IN THE MORNING
  15. BISOPROLOL [Concomitant]
     Active Substance: BISOPROLOL
     Dosage: 1.25 MG, 1X/DAY

REACTIONS (2)
  - Pancytopenia [Recovered/Resolved]
  - Liver function test abnormal [Recovering/Resolving]
